FAERS Safety Report 8176212-0 (Version None)
Quarter: 2012Q1

REPORT INFORMATION
  Report Type: 
  Country: None (occurrence: None)
  Receive Date: 20120301
  Receipt Date: 20120122
  Transmission Date: 20120608
  Serious: Yes (Other)
  Sender: FDA-Public Use
  Company Number: CA-JNJFOC-20120200365

PATIENT
  Sex: Female
  Weight: 120 kg

DRUGS (5)
  1. REMICADE [Suspect]
     Route: 042
     Dates: start: 20120122, end: 20120122
  2. BENADRYL [Concomitant]
     Route: 042
  3. HYDROCORTISONE [Concomitant]
     Route: 042
  4. REMICADE [Suspect]
     Indication: CROHN'S DISEASE
     Route: 042
     Dates: start: 20120106
  5. ACETAMINOPHEN [Concomitant]
     Route: 048

REACTIONS (10)
  - INFUSION RELATED REACTION [None]
  - DRY THROAT [None]
  - RASH PRURITIC [None]
  - COUGH [None]
  - URTICARIA [None]
  - MALAISE [None]
  - THROAT TIGHTNESS [None]
  - CHILLS [None]
  - FLUSHING [None]
  - NASAL CONGESTION [None]
